FAERS Safety Report 17430174 (Version 1)
Quarter: 2020Q1

REPORT INFORMATION
  Report Type: Spontaneous
  Country: TR (occurrence: US)
  Receive Date: 20200212
  Receipt Date: 20200212
  Transmission Date: 20200409
  Serious: Yes (Other)
  Sender: FDA-Public Use
  Company Number: TR-CUMBERLAND-2020-US-000009

PATIENT
  Age: 50 Year
  Sex: Male

DRUGS (4)
  1. KRISTALOSE [Suspect]
     Active Substance: LACTULOSE
  2. LAMIVUDINE. [Suspect]
     Active Substance: LAMIVUDINE
  3. SORAFENIB [Suspect]
     Active Substance: SORAFENIB
  4. SPIRONOLACTONE. [Suspect]
     Active Substance: SPIRONOLACTONE

REACTIONS (1)
  - Non-Hodgkin^s lymphoma [Unknown]
